FAERS Safety Report 8002153-5 (Version None)
Quarter: 2011Q4

REPORT INFORMATION
  Report Type: 
  Country: None (occurrence: None)
  Receive Date: 20111222
  Receipt Date: 20111214
  Transmission Date: 20120403
  Serious: Yes (Hospitalization)
  Sender: FDA-Public Use
  Company Number: JP-TEVA-313837ISR

PATIENT
  Age: 60 Year
  Sex: Male

DRUGS (2)
  1. MINOCYCLINE HCL [Suspect]
     Indication: CELLULITIS
     Dosage: 200 MILLIGRAM; 100MG 1 VIAL
  2. FLUMARIN [Concomitant]
     Dosage: 2 GRAM;
     Dates: start: 20111120

REACTIONS (1)
  - EOSINOPHILIC PNEUMONIA [None]
